FAERS Safety Report 23076801 (Version 1)
Quarter: 2023Q4

REPORT INFORMATION
  Report Type: Spontaneous
  Country: CN (occurrence: CN)
  Receive Date: 20231017
  Receipt Date: 20231017
  Transmission Date: 20240109
  Serious: Yes (Other)
  Sender: FDA-Public Use
  Company Number: CN-BoehringerIngelheim-2023-BI-266487

PATIENT
  Age: 59 Year
  Sex: Male
  Weight: 76.0 kg

DRUGS (4)
  1. GILOTRIF [Suspect]
     Active Substance: AFATINIB
     Indication: Neoplasm
     Route: 048
     Dates: start: 20230804, end: 20230811
  2. VINORELBINE [Suspect]
     Active Substance: VINORELBINE TARTRATE
     Indication: Neoplasm
     Route: 042
     Dates: start: 20230804, end: 20230804
  3. CARBOPLATIN [Suspect]
     Active Substance: CARBOPLATIN
     Indication: Neoplasm
     Route: 042
     Dates: start: 20230804, end: 20230804
  4. ENDOSTATIN [Suspect]
     Active Substance: ENDOSTATIN
     Indication: Neoplasm
     Route: 042
     Dates: start: 20230804, end: 20230806

REACTIONS (1)
  - Myelosuppression [Recovering/Resolving]

NARRATIVE: CASE EVENT DATE: 20230811
